FAERS Safety Report 24090808 (Version 1)
Quarter: 2024Q3

REPORT INFORMATION
  Report Type: Spontaneous
  Country: US (occurrence: US)
  Receive Date: 20240715
  Receipt Date: 20240715
  Transmission Date: 20241017
  Serious: No
  Sender: ROCHE
  Company Number: US-ROCHE-10000023643

PATIENT
  Age: 45 Year
  Sex: Female

DRUGS (5)
  1. ERLOTINIB [Suspect]
     Active Substance: ERLOTINIB
     Indication: Adenocarcinoma
     Route: 065
  2. GEFITINIB [Concomitant]
     Active Substance: GEFITINIB
  3. MITOMYCIN [Concomitant]
     Active Substance: MITOMYCIN
  4. VINBLASTINE [Concomitant]
     Active Substance: VINBLASTINE
  5. ETOPOSIDE [Concomitant]
     Active Substance: ETOPOSIDE

REACTIONS (1)
  - Disease progression [Unknown]
